FAERS Safety Report 12813084 (Version 1)
Quarter: 2016Q4

REPORT INFORMATION
  Report Type: Spontaneous
  Country: US (occurrence: US)
  Receive Date: 20161005
  Receipt Date: 20161005
  Transmission Date: 20170207
  Serious: No
  Sender: FDA-Public Use
  Company Number: US-AMGEN-USASP2016014879

PATIENT
  Age: 58 Year
  Sex: Female

DRUGS (7)
  1. HCTZ [Concomitant]
     Active Substance: HYDROCHLOROTHIAZIDE
  2. ZOHYDRO [Concomitant]
     Active Substance: HYDROCODONE BITARTRATE
  3. NORCO [Concomitant]
     Active Substance: ACETAMINOPHEN\HYDROCODONE BITARTRATE
  4. PROLIA [Suspect]
     Active Substance: DENOSUMAB
     Indication: OSTEOPOROSIS
     Dosage: 60 MG, Q6MO
     Route: 058
     Dates: end: 201602
  5. MORPHINE [Concomitant]
     Active Substance: MORPHINE
  6. CLONAZEPAM. [Concomitant]
     Active Substance: CLONAZEPAM
  7. CANDESARTAN [Concomitant]
     Active Substance: CANDESARTAN

REACTIONS (2)
  - Bone pain [Unknown]
  - Myalgia [Unknown]

NARRATIVE: CASE EVENT DATE: 201511
